FAERS Safety Report 8209678-8 (Version None)
Quarter: 2012Q1

REPORT INFORMATION
  Report Type: 
  Country: None (occurrence: None)
  Receive Date: 20120314
  Receipt Date: 20120306
  Transmission Date: 20120608
  Serious: Yes (Other)
  Sender: FDA-Public Use
  Company Number: ES-B.I. PHARMACEUTICALS,INC./RIDGEFIELD-2012-EU-01343GD

PATIENT
  Age: 70 Year
  Sex: Male

DRUGS (6)
  1. VALSARTAN [Concomitant]
     Indication: HYPERTENSION
  2. EPOETIN-ALPHA [Concomitant]
     Indication: NORMOCHROMIC NORMOCYTIC ANAEMIA
     Dosage: 4285.7143 U
  3. NEVIRAPINE [Suspect]
     Indication: HIV INFECTION
  4. NEVIRAPINE [Suspect]
  5. LAMIVUDINE [Concomitant]
     Indication: HIV INFECTION
  6. TENOFOVIR [Concomitant]
     Indication: HIV INFECTION

REACTIONS (3)
  - ASTHENIA [None]
  - HYPERHIDROSIS [None]
  - QUALITY OF LIFE DECREASED [None]
